FAERS Safety Report 7662765-5 (Version None)
Quarter: 2011Q3

REPORT INFORMATION
  Report Type: 
  Country: None (occurrence: None)
  Receive Date: 20110805
  Receipt Date: 20100827
  Transmission Date: 20111222
  Serious: No
  Sender: FDA-Public Use
  Company Number: US-ABBOTT-10P-163-0666786-00

PATIENT
  Sex: Female
  Weight: 74.91 kg

DRUGS (11)
  1. NIASPAN [Suspect]
     Indication: HYPERLIPIDAEMIA
     Dosage: 1/2 TAB DAILY FOR TWO WEEKS
     Dates: start: 20100804
  2. LEVOTHYROXINE SODIUM [Concomitant]
     Indication: PRODUCT USED FOR UNKNOWN INDICATION
  3. ASPIRIN [Concomitant]
     Indication: PRODUCT USED FOR UNKNOWN INDICATION
  4. ALBUTEROL SULFATE AUTOHALER [Concomitant]
     Indication: PRODUCT USED FOR UNKNOWN INDICATION
  5. XOLAIR [Concomitant]
     Indication: PRODUCT USED FOR UNKNOWN INDICATION
  6. ET [Concomitant]
     Indication: PRODUCT USED FOR UNKNOWN INDICATION
  7. CENTRUM MVT FOR WOMEN [Concomitant]
     Indication: PRODUCT USED FOR UNKNOWN INDICATION
  8. NIASPAN [Suspect]
  9. ZETIA [Concomitant]
     Indication: PRODUCT USED FOR UNKNOWN INDICATION
  10. ASTHMONEX INHALER [Concomitant]
     Indication: PRODUCT USED FOR UNKNOWN INDICATION
  11. FISH OIL [Concomitant]
     Indication: PRODUCT USED FOR UNKNOWN INDICATION

REACTIONS (4)
  - WRONG TECHNIQUE IN DRUG USAGE PROCESS [None]
  - FLUSHING [None]
  - PRURITUS [None]
  - SKIN BURNING SENSATION [None]
